FAERS Safety Report 7072472-8 (Version None)
Quarter: 2010Q4

REPORT INFORMATION
  Report Type: 
  Country: None (occurrence: None)
  Receive Date: 20101029
  Receipt Date: 20101018
  Transmission Date: 20110411
  Serious: Yes (Other)
  Sender: FDA-Public Use
  Company Number: JP-PFIZER INC-2010124993

PATIENT
  Age: 64 Year
  Sex: Male

DRUGS (3)
  1. LYRICA [Suspect]
     Indication: POST HERPETIC NEURALGIA
     Dosage: 225 MG/DAY
     Route: 048
     Dates: start: 20100702
  2. NORVASC [Suspect]
     Dosage: 5 MG/DAY
     Route: 048
     Dates: start: 20070101
  3. MICARDIS [Suspect]
     Dosage: 40 MG/DAY
     Route: 048
     Dates: start: 20070101

REACTIONS (1)
  - BREAST MASS [None]
